FAERS Safety Report 18978258 (Version 1)
Quarter: 2021Q1

REPORT INFORMATION
  Report Type: Spontaneous
  Country: US (occurrence: US)
  Receive Date: 20210307
  Receipt Date: 20210307
  Transmission Date: 20210420
  Serious: No
  Sender: FDA-Public Use
  Company Number: US-SA-2021SA073278

PATIENT
  Age: 65 Year
  Sex: Female

DRUGS (1)
  1. RENVELA [Suspect]
     Active Substance: SEVELAMER CARBONATE
     Dosage: UNK

REACTIONS (5)
  - Pruritus [Unknown]
  - Skin discolouration [Unknown]
  - Rash [Unknown]
  - Skin swelling [Unknown]
  - Burning sensation [Unknown]
